FAERS Safety Report 15524849 (Version 2)
Quarter: 2018Q4

REPORT INFORMATION
  Report Type: Spontaneous
  Country: US (occurrence: US)
  Receive Date: 20181019
  Receipt Date: 20181115
  Transmission Date: 20190205
  Serious: Yes (Hospitalization, Other)
  Sender: FDA-Public Use
  Company Number: US-JAZZ-JPI-P-033277

PATIENT
  Sex: Female

DRUGS (11)
  1. LEVOCARNITINE. [Concomitant]
     Active Substance: LEVOCARNITINE
  2. EFFEXOR [Concomitant]
     Active Substance: VENLAFAXINE HYDROCHLORIDE
  3. MOMETASONE FUROATE. [Concomitant]
     Active Substance: MOMETASONE FUROATE
  4. TERASIN [Concomitant]
  5. XYREM [Suspect]
     Active Substance: SODIUM OXYBATE
     Indication: NARCOLEPSY
     Dosage: UNK UNKNOWN, SINGLE
     Route: 048
     Dates: start: 20120726, end: 201211
  6. XYREM [Suspect]
     Active Substance: SODIUM OXYBATE
     Dosage: 3 G, BID
     Route: 048
     Dates: start: 201305
  7. ERGOCALCIFEROL. [Concomitant]
     Active Substance: ERGOCALCIFEROL
  8. XYREM [Suspect]
     Active Substance: SODIUM OXYBATE
     Indication: CATAPLEXY
     Dosage: UNK UNKNOWN, SINGLE
     Route: 048
     Dates: start: 201303, end: 2013
  9. NUVIGIL [Suspect]
     Active Substance: ARMODAFINIL
     Indication: PRODUCT USED FOR UNKNOWN INDICATION
  10. SINGULAIR [Concomitant]
     Active Substance: MONTELUKAST SODIUM
  11. FISH OIL [Concomitant]
     Active Substance: FISH OIL

REACTIONS (5)
  - Somnambulism [Recovered/Resolved]
  - Cataplexy [Not Recovered/Not Resolved]
  - Dyskinesia [Recovered/Resolved]
  - Hallucination [Not Recovered/Not Resolved]
  - Mental status changes [Unknown]

NARRATIVE: CASE EVENT DATE: 2013
